FAERS Safety Report 20580366 (Version 1)
Quarter: 2022Q1

REPORT INFORMATION
  Report Type: Spontaneous
  Country: NL (occurrence: NL)
  Receive Date: 20220311
  Receipt Date: 20220311
  Transmission Date: 20220424
  Serious: Yes (Other)
  Sender: FDA-Public Use
  Company Number: NL-LRB-00795009

PATIENT
  Sex: Male
  Weight: 99 kg

DRUGS (1)
  1. VALSARTAN [Suspect]
     Active Substance: VALSARTAN
     Indication: Product used for unknown indication
     Dosage: 80 MILLIGRAM, ONCE A DAY
     Route: 065
     Dates: start: 202201

REACTIONS (2)
  - Oesophageal compression [Not Recovered/Not Resolved]
  - Dysphagia [Not Recovered/Not Resolved]
